FAERS Safety Report 17109241 (Version 1)
Quarter: 2019Q4

REPORT INFORMATION
  Report Type: Spontaneous
  Country: NL (occurrence: NL)
  Receive Date: 20191204
  Receipt Date: 20191204
  Transmission Date: 20200122
  Serious: Yes (Other)
  Sender: FDA-Public Use
  Company Number: NL-TEVA-2019-NL-1145550

PATIENT
  Age: 81 Year
  Sex: Female
  Weight: 83 kg

DRUGS (7)
  1. ALENDRONINEZUUR TABLET, 70 MG (MILLIGRAM [Suspect]
     Active Substance: ALENDRONIC ACID
     Indication: OSTEOPOROSIS
     Dosage: 1X PER WEEK
     Dates: start: 20191002, end: 20191021
  2. METOPROLOLSUCC RET T 50MG [Concomitant]
     Dosage: 50 MG; 1.1T
     Dates: start: 20051130
  3. ATORVASTATINE TABL OMH 20MG [Concomitant]
     Dosage: 20 MG; 1.1T
     Dates: start: 20110517
  4. LISINOPRIL TABL 20MG [Concomitant]
     Dosage: 20 MG; 1.1T
     Dates: start: 20051130
  5. CALC CHEW D3 KT 500MG/800IE [Concomitant]
     Dosage: 1.1T; 500MG/800IE; 1 DF
     Dates: start: 20171107
  6. OMEPRAZOL CAPS MSR 40MG [Concomitant]
     Dosage: 40 MG; 1.1C
     Dates: start: 20100201
  7. ASCAL CARDIO-NEURO BT 100MG [Concomitant]
     Dosage: 100 MG; 1.1T
     Dates: start: 20110817

REACTIONS (3)
  - Myalgia [Recovered/Resolved]
  - Erysipelas [Recovered/Resolved]
  - Pyrexia [Recovered/Resolved]

NARRATIVE: CASE EVENT DATE: 20191003
